FAERS Safety Report 8812731 (Version 1)
Quarter: 2012Q4

REPORT INFORMATION
  Report Type: Report from Study
  Country: US (occurrence: US)
  Receive Date: 20120927
  Receipt Date: 20120927
  Transmission Date: 20130627
  Serious: Yes (Other)
  Sender: FDA-Public Use
  Company Number: US-ABBOTT-12P-163-0981322-00

PATIENT
  Sex: Male
  Weight: 92.16 kg

DRUGS (11)
  1. HUMIRA [Suspect]
     Indication: RHEUMATOID ARTHRITIS
     Route: 058
     Dates: start: 2006
  2. GLYBURIDE/METFORMIN [Concomitant]
     Indication: DIABETES MELLITUS
  3. METOPROLOL [Concomitant]
     Indication: HYPERTENSION
  4. LAMICTAL [Concomitant]
     Indication: BIPOLAR DISORDER
  5. ARAVA [Concomitant]
     Indication: RHEUMATOID ARTHRITIS
  6. LITHIUM [Concomitant]
     Indication: BIPOLAR DISORDER
  7. BONIVA [Concomitant]
     Indication: OSTEOPOROSIS
  8. LOTREL [Concomitant]
     Indication: HYPERTENSION
  9. LIPITOR [Concomitant]
     Indication: BLOOD CHOLESTEROL INCREASED
  10. BUDEPRION [Concomitant]
     Indication: BIPOLAR DISORDER
  11. CLONIDINE [Concomitant]
     Indication: HYPERTENSION

REACTIONS (2)
  - Pancreatolithiasis [Not Recovered/Not Resolved]
  - Abdominal pain [Recovering/Resolving]
